FAERS Safety Report 11647685 (Version 1)
Quarter: 2015Q4

REPORT INFORMATION
  Report Type: Spontaneous
  Country: US (occurrence: None)
  Receive Date: 20151020
  Receipt Date: 20151020
  Transmission Date: 20160304
  Serious: Yes (Disabling)
  Sender: FDA-Public Use
  Company Number: None

PATIENT
  Age: 39 Year
  Weight: 118 kg

DRUGS (9)
  1. GABAPENTIN. [Concomitant]
     Active Substance: GABAPENTIN
  2. OIL OF EVENING PRIMROSE [Concomitant]
  3. LEVAQUIN [Suspect]
     Active Substance: LEVOFLOXACIN
     Indication: SINUSITIS
     Dosage: TAKEN BY MOUTH
     Dates: start: 20130725, end: 20130731
  4. TOPAMAX [Concomitant]
     Active Substance: TOPIRAMATE
  5. COLLAGEN [Concomitant]
     Active Substance: COLLAGEN
  6. GABA [Concomitant]
     Active Substance: .GAMMA.-AMINOBUTYRIC ACID
  7. VITAMIN B12 [Concomitant]
     Active Substance: CYANOCOBALAMIN
  8. D3 [Concomitant]
     Active Substance: 25-HYDROXYCHOLECALCIFEROL, 5-TRANS-
  9. MAXALT [Concomitant]
     Active Substance: RIZATRIPTAN BENZOATE

REACTIONS (27)
  - Muscle rupture [None]
  - Memory impairment [None]
  - Fatigue [None]
  - Pain [None]
  - Arthralgia [None]
  - Gait disturbance [None]
  - Tinnitus [None]
  - Tendon rupture [None]
  - Visual impairment [None]
  - Neuropathy peripheral [None]
  - Movement disorder [None]
  - Skin wrinkling [None]
  - Cognitive disorder [None]
  - Abnormal dreams [None]
  - Basal cell carcinoma [None]
  - Injection site reaction [None]
  - Adrenal disorder [None]
  - Muscle twitching [None]
  - Abnormal behaviour [None]
  - Facial pain [None]
  - Impaired driving ability [None]
  - Disease recurrence [None]
  - Feeling abnormal [None]
  - Migraine [None]
  - Nerve compression [None]
  - Anxiety [None]
  - Mitochondrial toxicity [None]

NARRATIVE: CASE EVENT DATE: 20130725
